FAERS Safety Report 6999481-9 (Version None)
Quarter: 2010Q3

REPORT INFORMATION
  Report Type: 
  Country: None (occurrence: None)
  Receive Date: 20100920
  Receipt Date: 20071128
  Transmission Date: 20110219
  Serious: Yes (Other)
  Sender: FDA-Public Use
  Company Number: US-ASTRAZENECA-2007UW01745

PATIENT
  Age: 13277 Day
  Sex: Male
  Weight: 158.8 kg

DRUGS (14)
  1. SEROQUEL [Suspect]
     Indication: SLEEP DISORDER
     Route: 048
     Dates: start: 20010422, end: 20010730
  2. SEROQUEL [Suspect]
     Dosage: 25 MG - 900 MG
     Route: 048
     Dates: start: 20010513, end: 20010719
  3. ZYPREXA [Concomitant]
     Dates: start: 20020123
  4. ZYPREXA [Concomitant]
     Route: 048
     Dates: start: 20020123
  5. WELLBUTRIN SR [Concomitant]
     Route: 048
     Dates: start: 20010513
  6. GLUCOTROL [Concomitant]
     Route: 048
     Dates: start: 20010513
  7. DEPAKOTE [Concomitant]
     Route: 048
     Dates: start: 20010101
  8. EFFEXOR XR [Concomitant]
     Dosage: 225 MG - 300 MG
     Route: 048
     Dates: start: 20010422
  9. KLONOPIN [Concomitant]
     Dosage: 0.5 MG - 3 MG
     Route: 048
     Dates: start: 20010422
  10. TRAZODONE HCL [Concomitant]
     Indication: SLEEP DISORDER
     Dosage: 50 MG - 150 MG
     Route: 048
     Dates: start: 20010422
  11. ZESTRIL [Concomitant]
     Dosage: 10 MG - 20 MG
     Route: 048
     Dates: start: 20010422
  12. DARVOCET [Concomitant]
     Indication: PAIN
     Dosage: 100 MG - 650 MG
     Route: 048
     Dates: start: 20010513
  13. ATIVAN [Concomitant]
     Route: 048
     Dates: start: 20010513
  14. PRILOSEC [Concomitant]
     Indication: GASTROOESOPHAGEAL REFLUX DISEASE
     Route: 048
     Dates: start: 20010422

REACTIONS (2)
  - DIABETES MELLITUS [None]
  - TYPE 2 DIABETES MELLITUS [None]
